FAERS Safety Report 23713072 (Version 1)
Quarter: 2024Q2

REPORT INFORMATION
  Report Type: Spontaneous
  Country: GB (occurrence: GB)
  Receive Date: 20240405
  Receipt Date: 20240405
  Transmission Date: 20240716
  Serious: Yes (Other)
  Sender: FDA-Public Use
  Company Number: GB-ROCHE-2729221

PATIENT
  Age: 72 Year
  Sex: Female
  Weight: 62 kg

DRUGS (73)
  1. PREDNISOLONE [Suspect]
     Active Substance: PREDNISOLONE
     Indication: Diffuse large B-cell lymphoma
     Dosage: UNK
     Route: 065
     Dates: start: 20201118, end: 20201122
  2. PREDNISOLONE [Suspect]
     Active Substance: PREDNISOLONE
     Route: 065
     Dates: start: 20201118, end: 20201122
  3. PREDNISOLONE [Suspect]
     Active Substance: PREDNISOLONE
     Dosage: DATE OF MOST RECENT DOSE PRIOR TO FIRST EPISODE OF NEUTROPENIA 24/NOV/2020. DATE OF MOST RECENT D...
     Route: 065
     Dates: start: 20201124
  4. VALGANCICLOVIR [Suspect]
     Active Substance: VALGANCICLOVIR
     Indication: Cytomegalovirus viraemia
     Dosage: DURATION: 18 DAYS
     Route: 065
     Dates: start: 20210426, end: 20210513
  5. VINCRISTINE [Suspect]
     Active Substance: VINCRISTINE
     Indication: Diffuse large B-cell lymphoma
     Dosage: UNK
     Route: 065
  6. VINCRISTINE [Suspect]
     Active Substance: VINCRISTINE
     Dosage: TOTAL VOLUME: 50 ML, DATE OF MOST RECENT DOSE PRIOR TO FIRST EPISODE OF NEUTROPENIA 24/NOV/2020
     Route: 065
     Dates: start: 20201124
  7. VINCRISTINE [Suspect]
     Active Substance: VINCRISTINE
     Dosage: UNK
     Route: 065
  8. VINCRISTINE [Suspect]
     Active Substance: VINCRISTINE
     Dosage: UNK
     Route: 065
  9. VINCRISTINE [Suspect]
     Active Substance: VINCRISTINE
     Dosage: UNK
     Route: 065
  10. RITUXIMAB [Suspect]
     Active Substance: RITUXIMAB
     Indication: Diffuse large B-cell lymphoma
     Dosage: UNK
     Route: 065
  11. RITUXIMAB [Suspect]
     Active Substance: RITUXIMAB
     Dosage: 600 MG, TIW
     Route: 065
     Dates: start: 20210105, end: 20210216
  12. RITUXIMAB [Suspect]
     Active Substance: RITUXIMAB
     Dosage: UNK
     Route: 065
  13. RITUXIMAB [Suspect]
     Active Substance: RITUXIMAB
     Route: 065
  14. RITUXIMAB [Suspect]
     Active Substance: RITUXIMAB
     Dosage: UNK
     Route: 065
  15. RITUXIMAB [Suspect]
     Active Substance: RITUXIMAB
     Dosage: DURATION: 1 DAY
     Route: 065
     Dates: start: 20210216, end: 20210216
  16. RITUXIMAB [Suspect]
     Active Substance: RITUXIMAB
     Dosage: UNK
     Route: 065
  17. RITUXIMAB [Suspect]
     Active Substance: RITUXIMAB
     Dosage: UNK
     Route: 065
  18. RITUXIMAB [Suspect]
     Active Substance: RITUXIMAB
     Dosage: TOTAL VOLUME PRIOR AE 560 ML DATE OF MOST RECENT DOSE PRIOR TO FIRST EPISODE OF NEUTROPENIA 24/NO...
     Route: 065
     Dates: start: 20201124
  19. RITUXIMAB [Suspect]
     Active Substance: RITUXIMAB
     Dosage: DURATION: 1 DAY
     Route: 065
     Dates: start: 20201221, end: 20201221
  20. CYCLOPHOSPHAMIDE [Suspect]
     Active Substance: CYCLOPHOSPHAMIDE
     Indication: Diffuse large B-cell lymphoma
     Dosage: UNK
     Route: 065
  21. CYCLOPHOSPHAMIDE [Suspect]
     Active Substance: CYCLOPHOSPHAMIDE
     Dosage: UNK
     Route: 065
  22. CYCLOPHOSPHAMIDE [Suspect]
     Active Substance: CYCLOPHOSPHAMIDE
     Dosage: UNK
     Route: 065
  23. CYCLOPHOSPHAMIDE [Suspect]
     Active Substance: CYCLOPHOSPHAMIDE
     Dosage: TOTAL VOLUME PRIOR AE 313 ML, DATE OF MOST RECENT DOSE PRIOR TO FIRST EPISODE OF NEUTROPENIA 24/NO
     Route: 065
     Dates: start: 20201124
  24. CYCLOPHOSPHAMIDE [Suspect]
     Active Substance: CYCLOPHOSPHAMIDE
     Dosage: UNK
     Route: 065
  25. GLOFITAMAB [Suspect]
     Active Substance: GLOFITAMAB
     Indication: Diffuse large B-cell lymphoma
     Dosage: UNK
     Route: 065
  26. GLOFITAMAB [Suspect]
     Active Substance: GLOFITAMAB
     Dosage: THE MOST RECENT DOSE OF RO7082859 (10 MG) WAS ADMINISTERED ON 30/DEC/2020 AT 1:30 PM TOTAL VOLUME...
     Route: 065
     Dates: start: 20201222
  27. GLOFITAMAB [Suspect]
     Active Substance: GLOFITAMAB
     Dosage: UNK
     Route: 065
  28. GLOFITAMAB [Suspect]
     Active Substance: GLOFITAMAB
     Dosage: UNK
     Route: 065
  29. GLOFITAMAB [Suspect]
     Active Substance: GLOFITAMAB
     Route: 065
  30. DOXORUBICIN HYDROCHLORIDE [Suspect]
     Active Substance: DOXORUBICIN HYDROCHLORIDE
     Indication: Diffuse large B-cell lymphoma
     Dosage: 50 MG/M2, TIW (DATE OF MOST RECENT DOSE PRIOR TO FIRST EPISODE OF NEUTROPENIA (TOTAL VOLUME 40 ML) 2
     Route: 065
     Dates: start: 20201124
  31. DOXORUBICIN [Suspect]
     Active Substance: DOXORUBICIN
     Indication: Diffuse large B-cell lymphoma
     Dosage: UNK
     Route: 065
  32. DOXORUBICIN [Suspect]
     Active Substance: DOXORUBICIN
     Dosage: UNK
     Route: 065
  33. DOXORUBICIN [Suspect]
     Active Substance: DOXORUBICIN
     Dosage: UNK
     Route: 065
  34. DOXORUBICIN [Suspect]
     Active Substance: DOXORUBICIN
     Dosage: ON DAY 1 OF EACH 21-DAY CYCLE DATE OF MOST RECENT DOSE PRIOR TO FIRST EPISODE OF NEUTROPENIA (TOT...
     Route: 065
     Dates: start: 20201124
  35. DOXORUBICIN [Suspect]
     Active Substance: DOXORUBICIN
     Dosage: UNK
     Route: 065
  36. OMEPRAZOLE [Concomitant]
     Active Substance: OMEPRAZOLE
     Indication: Gastrointestinal disorder prophylaxis
     Dosage: UNK
     Route: 065
     Dates: start: 20201118
  37. BENDAMUSTINE HYDROCHLORIDE [Concomitant]
     Active Substance: BENDAMUSTINE HYDROCHLORIDE
     Indication: Product used for unknown indication
     Dosage: UNK
     Route: 065
  38. PREDNISOLONE [Concomitant]
     Active Substance: PREDNISOLONE
     Indication: Product used for unknown indication
     Dosage: UNK
     Route: 065
     Dates: start: 20201118, end: 20201122
  39. PREDNISOLONE [Concomitant]
     Active Substance: PREDNISOLONE
     Indication: Diffuse large B-cell lymphoma
  40. DEXAMETHASONE [Concomitant]
     Active Substance: DEXAMETHASONE
     Indication: Product used for unknown indication
     Dosage: DURATION: 1 DAY
     Route: 065
     Dates: start: 20210302, end: 20210302
  41. DEXAMETHASONE [Concomitant]
     Active Substance: DEXAMETHASONE
     Dosage: DURATION: 1 DAY
     Route: 065
     Dates: start: 20210209, end: 20210209
  42. DEXAMETHASONE [Concomitant]
     Active Substance: DEXAMETHASONE
     Dosage: DURATION: 1 DAY
     Route: 065
     Dates: start: 20210119, end: 20210119
  43. DEXAMETHASONE [Concomitant]
     Active Substance: DEXAMETHASONE
     Dosage: DURATION: 1 DAY
     Route: 065
     Dates: start: 20210323, end: 20210323
  44. ACETAMINOPHEN [Concomitant]
     Active Substance: ACETAMINOPHEN
     Indication: Prophylaxis
     Dosage: DURATION: 1 DAY
     Route: 065
     Dates: start: 20210209, end: 20210209
  45. ACETAMINOPHEN [Concomitant]
     Active Substance: ACETAMINOPHEN
     Dosage: DURATION: 1 DAY
     Route: 065
     Dates: start: 20201124, end: 20201124
  46. ACETAMINOPHEN [Concomitant]
     Active Substance: ACETAMINOPHEN
     Dosage: DURATION: 1 DAY
     Route: 065
     Dates: start: 20210309, end: 20210309
  47. ACETAMINOPHEN [Concomitant]
     Active Substance: ACETAMINOPHEN
     Dosage: DURATION: 1 DAY
     Route: 065
     Dates: start: 20210126, end: 20210126
  48. ACETAMINOPHEN [Concomitant]
     Active Substance: ACETAMINOPHEN
     Dosage: DURATION: 1 DAY
     Route: 065
     Dates: start: 20210119, end: 20210119
  49. ACETAMINOPHEN [Concomitant]
     Active Substance: ACETAMINOPHEN
     Route: 065
     Dates: start: 20201123
  50. ACETAMINOPHEN [Concomitant]
     Active Substance: ACETAMINOPHEN
     Dosage: DURATION: 1 DAY
     Route: 065
     Dates: start: 20210302, end: 20210302
  51. ACETAMINOPHEN [Concomitant]
     Active Substance: ACETAMINOPHEN
     Dosage: UNK
     Route: 065
     Dates: start: 20201123
  52. ACETAMINOPHEN [Concomitant]
     Active Substance: ACETAMINOPHEN
     Dosage: DURATION: 1 DAY
     Route: 065
     Dates: start: 20210216, end: 20210216
  53. ACETAMINOPHEN [Concomitant]
     Active Substance: ACETAMINOPHEN
     Dosage: DURATION: 1 DAY
     Route: 065
     Dates: start: 20210126, end: 20210126
  54. ACETAMINOPHEN [Concomitant]
     Active Substance: ACETAMINOPHEN
     Dosage: DURATION: 1 DAY
     Route: 065
     Dates: start: 20201215, end: 20201215
  55. ACETAMINOPHEN [Concomitant]
     Active Substance: ACETAMINOPHEN
     Dosage: DURATION: 1 DAY
     Route: 065
     Dates: start: 20210323, end: 20210323
  56. FILGRASTIM [Concomitant]
     Active Substance: FILGRASTIM
     Indication: Prophylaxis
     Dosage: UNK
     Route: 065
     Dates: start: 20201220
  57. FILGRASTIM [Concomitant]
     Active Substance: FILGRASTIM
     Dosage: UNK
     Route: 065
     Dates: start: 20201129, end: 20201206
  58. SARS-COV-2 VACCINE [Concomitant]
     Indication: COVID-19 immunisation
     Dosage: (PFIZER) BNT162B2, DURATION: 1 DAY
     Route: 065
     Dates: start: 20210428, end: 20210428
  59. SENNA [Concomitant]
     Active Substance: SENNA LEAF\SENNOSIDES\SENNOSIDES A AND B
     Indication: Constipation
     Dosage: UNK
     Route: 065
     Dates: start: 20201124
  60. CHLORPHENAMINE [CHLORPHENAMINE MALEATE] [Concomitant]
     Indication: Prophylaxis
     Dosage: DURATION: 1 DAY
     Dates: start: 20201215, end: 20201215
  61. CHLORPHENAMINE [CHLORPHENAMINE MALEATE] [Concomitant]
     Indication: Rash maculo-papular
     Dosage: 10 MG
     Dates: start: 20210216, end: 20210216
  62. CHLORPHENAMINE [CHLORPHENAMINE MALEATE] [Concomitant]
     Dosage: DURATION: 1 DAY
     Dates: start: 20210126, end: 20210126
  63. CHLORPHENAMINE [CHLORPHENAMINE MALEATE] [Concomitant]
     Dosage: DOSE LAST STUDY DRUG ADMIN PRIOR AE 1260 MG, START AD END DATE OF MOST RECENT DOSE OF STUDY DRUG PRI
     Dates: start: 20201124, end: 20201124
  64. CHLORPHENAMINE [CHLORPHENAMINE MALEATE] [Concomitant]
     Dosage: UNK
     Dates: start: 20201217
  65. CHLORPHENAMINE [CHLORPHENAMINE MALEATE] [Concomitant]
     Dosage: DURATION: 1 DAY
     Dates: start: 20210323, end: 20210323
  66. CHLORPHENAMINE [CHLORPHENAMINE MALEATE] [Concomitant]
     Dosage: DURATION: 1 DAY
     Dates: start: 20210119, end: 20210119
  67. CHLORPHENAMINE [CHLORPHENAMINE MALEATE] [Concomitant]
     Dosage: DURATION: 1 DAY
     Dates: start: 20210302, end: 20210302
  68. CHLORPHENAMINE [CHLORPHENAMINE MALEATE] [Concomitant]
     Dosage: DURATION: 1 DAY
     Dates: start: 20210209, end: 20210209
  69. CHLORPHENAMINE [CHLORPHENAMINE MALEATE] [Concomitant]
     Dosage: DURATION: 1 DAY
     Dates: start: 20210309, end: 20210309
  70. CODEINE [Concomitant]
     Active Substance: CODEINE
     Indication: Pain
     Dosage: UNK
     Route: 065
     Dates: start: 20201123
  71. CODEINE [Concomitant]
     Active Substance: CODEINE
     Dosage: DURATION: 1 DAY
     Dates: start: 20201224, end: 20201224
  72. SENOKOT [Concomitant]
     Active Substance: SENNOSIDES
     Indication: Constipation
  73. ALLOPURINOL [Concomitant]
     Active Substance: ALLOPURINOL
     Indication: Prophylaxis
     Dosage: UNK
     Route: 065
     Dates: start: 20201118

REACTIONS (5)
  - Neutropenia [Recovered/Resolved]
  - Neutropenia [Recovered/Resolved]
  - Neutropenia [Recovered/Resolved]
  - Off label use [Unknown]
  - Product use in unapproved indication [Unknown]

NARRATIVE: CASE EVENT DATE: 20201124
